FAERS Safety Report 20553623 (Version 1)
Quarter: 2022Q1

REPORT INFORMATION
  Report Type: Spontaneous
  Country: US (occurrence: US)
  Receive Date: 20220304
  Receipt Date: 20220304
  Transmission Date: 20220423
  Serious: Yes (Hospitalization, Disabling, Other)
  Sender: FDA-Public Use
  Company Number: US-AMGEN-USASP2022035239

PATIENT
  Age: 78 Year

DRUGS (1)
  1. REPATHA [Suspect]
     Active Substance: EVOLOCUMAB
     Indication: Hypercholesterolaemia
     Dosage: 140 MILLIGRAM, Q2WK
     Route: 065
     Dates: start: 202101, end: 202201

REACTIONS (8)
  - Loss of consciousness [Recovered/Resolved]
  - Skull fracture [Recovering/Resolving]
  - Traumatic intracranial haemorrhage [Recovering/Resolving]
  - Upper limb fracture [Recovering/Resolving]
  - Concussion [Recovering/Resolving]
  - Eye injury [Recovering/Resolving]
  - Incontinence [Not Recovered/Not Resolved]
  - Blood glucose increased [Recovering/Resolving]

NARRATIVE: CASE EVENT DATE: 20210501
